FAERS Safety Report 13938214 (Version 3)
Quarter: 2017Q3

REPORT INFORMATION
  Report Type: Spontaneous
  Country: CN (occurrence: CN)
  Receive Date: 20170905
  Receipt Date: 20170914
  Transmission Date: 20171127
  Serious: Yes (Hospitalization)
  Sender: FDA-Public Use
  Company Number: CN-B.I. PHARMACEUTICALS,INC./RIDGEFIELD-2017-BI-048036

PATIENT
  Age: 51 Year
  Sex: Female

DRUGS (6)
  1. GILOTRIF [Suspect]
     Active Substance: AFATINIB
     Indication: LUNG ADENOCARCINOMA
     Route: 048
     Dates: start: 20170808
  2. PENICILLIN [Concomitant]
     Active Substance: PENICILLIN
     Indication: PRODUCTIVE COUGH
  3. AZITHROMYCIN ANHYDROUS. [Concomitant]
     Active Substance: AZITHROMYCIN ANHYDROUS
     Indication: COUGH
     Route: 065
  4. PENICILLIN [Concomitant]
     Active Substance: PENICILLIN
     Indication: COUGH
     Route: 065
  5. AZITHROMYCIN ANHYDROUS. [Concomitant]
     Active Substance: AZITHROMYCIN ANHYDROUS
     Indication: PRODUCTIVE COUGH
  6. GILOTRIF [Suspect]
     Active Substance: AFATINIB
     Route: 048

REACTIONS (1)
  - Cardiac failure [Not Recovered/Not Resolved]

NARRATIVE: CASE EVENT DATE: 20170818
